FAERS Safety Report 25670629 (Version 1)
Quarter: 2025Q3

REPORT INFORMATION
  Report Type: Spontaneous
  Country: CN (occurrence: CN)
  Receive Date: 20250812
  Receipt Date: 20250812
  Transmission Date: 20251020
  Serious: Yes (Life-Threatening, Hospitalization)
  Sender: MACLEODS
  Company Number: CN-MLMSERVICE-20250725-PI592047-00202-1

PATIENT

DRUGS (3)
  1. LINEZOLID [Suspect]
     Active Substance: LINEZOLID
     Indication: Staphylococcal bacteraemia
     Dosage: 600 MG IV EVERY 12 HOURS
     Route: 042
     Dates: start: 20241219, end: 20241222
  2. PENTAZOCINE [Suspect]
     Active Substance: PENTAZOCINE
     Indication: Wound complication
     Dosage: 30 MG INTRAMUSCULARLY, 3 TIMES DAILY
     Route: 030
     Dates: start: 20241205, end: 20241222
  3. PENTAZOCINE [Suspect]
     Active Substance: PENTAZOCINE
     Indication: Wound complication

REACTIONS (2)
  - Serotonin syndrome [Recovered/Resolved]
  - Drug interaction [Recovered/Resolved]

NARRATIVE: CASE EVENT DATE: 20241201
